FAERS Safety Report 9460796 (Version 2)
Quarter: 2013Q3

REPORT INFORMATION
  Report Type: Spontaneous
  Country: US (occurrence: US)
  Receive Date: 20130815
  Receipt Date: 20130821
  Transmission Date: 20140515
  Serious: Yes (Other)
  Sender: FDA-Public Use
  Company Number: US-TEVA-425454USA

PATIENT
  Age: 60 Year
  Sex: Female

DRUGS (1)
  1. COPAXONE [Suspect]
     Indication: MULTIPLE SCLEROSIS
     Dates: start: 20070618

REACTIONS (6)
  - Fall [Unknown]
  - Hip fracture [Unknown]
  - Pneumonia aspiration [Unknown]
  - Bone disorder [Unknown]
  - Walking aid user [Unknown]
  - Malaise [Unknown]
